FAERS Safety Report 10861235 (Version 1)
Quarter: 2015Q1

REPORT INFORMATION
  Report Type: Spontaneous
  Country: US (occurrence: US)
  Receive Date: 20150224
  Receipt Date: 20150224
  Transmission Date: 20150721
  Serious: Yes (Hospitalization)
  Sender: FDA-Public Use
  Company Number: US-JNJFOC-20150208954

PATIENT
  Age: 16 Year
  Sex: Female

DRUGS (1)
  1. IBUPROFEN. [Suspect]
     Active Substance: IBUPROFEN
     Indication: COSTOCHONDRITIS
     Route: 065

REACTIONS (2)
  - Gastric ulcer perforation [Recovered/Resolved]
  - Pneumoperitoneum [Recovered/Resolved]
